FAERS Safety Report 12499405 (Version 1)
Quarter: 2016Q2

REPORT INFORMATION
  Report Type: Spontaneous
  Country: US (occurrence: None)
  Receive Date: 20160624
  Receipt Date: 20160624
  Transmission Date: 20160815
  Serious: Yes (Death)
  Sender: FDA-Public Use
  Company Number: None

PATIENT
  Age: 68 Year
  Sex: Female
  Weight: 65.59 kg

DRUGS (11)
  1. MVI [Concomitant]
     Active Substance: VITAMINS
  2. PROCHLORPERAZINE. [Concomitant]
     Active Substance: PROCHLORPERAZINE
  3. CIPROFLOXACIN. [Concomitant]
     Active Substance: CIPROFLOXACIN
  4. FOSAPREPITANT [Concomitant]
     Active Substance: FOSAPREPITANT
  5. DEXAMETHASONE. [Concomitant]
     Active Substance: DEXAMETHASONE
  6. ATORVASTATIN [Concomitant]
     Active Substance: ATORVASTATIN
  7. LORAZEPAM. [Concomitant]
     Active Substance: LORAZEPAM
  8. PALONOSETRON [Concomitant]
     Active Substance: PALONOSETRON
  9. CYCLOPHOSPHAMIDE. [Concomitant]
     Active Substance: CYCLOPHOSPHAMIDE
  10. NEULASTA [Suspect]
     Active Substance: PEGFILGRASTIM
     Indication: FEBRILE NEUTROPENIA
     Route: 042
  11. DOXORUBICIN [Concomitant]
     Active Substance: DOXORUBICIN

REACTIONS (4)
  - Unresponsive to stimuli [None]
  - Erythema [None]
  - Blood pressure increased [None]
  - Swelling face [None]

NARRATIVE: CASE EVENT DATE: 20160621
